FAERS Safety Report 8522357-2 (Version None)
Quarter: 2012Q3

REPORT INFORMATION
  Report Type: 
  Country: None (occurrence: None)
  Receive Date: 20120719
  Receipt Date: 20120712
  Transmission Date: 20120928
  Serious: Yes (Hospitalization, Other)
  Sender: FDA-Public Use
  Company Number: US-ABBOTT-12P-163-0955823-00

PATIENT
  Age: 60 Year
  Sex: Female

DRUGS (14)
  1. BUPROPION HCL [Concomitant]
     Indication: PRODUCT USED FOR UNKNOWN INDICATION
  2. JANUVIA [Concomitant]
     Indication: PRODUCT USED FOR UNKNOWN INDICATION
  3. HUMIRA [Suspect]
     Indication: PSORIASIS
     Dates: start: 20120401, end: 20120501
  4. OMEPRAZOLE [Concomitant]
     Indication: PRODUCT USED FOR UNKNOWN INDICATION
  5. CYMBALTA [Concomitant]
     Indication: PRODUCT USED FOR UNKNOWN INDICATION
  6. LYRICA [Concomitant]
     Indication: PRODUCT USED FOR UNKNOWN INDICATION
  7. FAMOTIDINE [Concomitant]
     Indication: PRODUCT USED FOR UNKNOWN INDICATION
  8. HYDROCODONE BITARTRATE [Concomitant]
     Indication: PRODUCT USED FOR UNKNOWN INDICATION
  9. CLOBETASOL PROPIONATE [Concomitant]
     Indication: SKIN DISORDER
     Dosage: ^PROP^ OINTMENT
  10. LORAZEPAM [Concomitant]
     Indication: ANXIETY
  11. LIPITOR [Concomitant]
     Indication: PRODUCT USED FOR UNKNOWN INDICATION
  12. VITAMIN B-12 [Concomitant]
     Indication: ASTHENIA
  13. TIZANIDINE HYDROCHLORIDE [Concomitant]
     Indication: MUSCLE DISORDER
  14. OVER THE COUNTER ALLERGY PILLS [Concomitant]
     Indication: SEASONAL ALLERGY

REACTIONS (8)
  - BLOOD GLUCOSE ABNORMAL [None]
  - DIARRHOEA [None]
  - VOMITING [None]
  - CONTUSION [None]
  - JOINT INJURY [None]
  - GAIT DISTURBANCE [None]
  - FALL [None]
  - ACCIDENT AT WORK [None]
